FAERS Safety Report 14315463 (Version 3)
Quarter: 2018Q4

REPORT INFORMATION
  Report Type: Report from Study
  Country: AT (occurrence: AT)
  Receive Date: 20171221
  Receipt Date: 20181226
  Transmission Date: 20190204
  Serious: Yes (Hospitalization, Other)
  Sender: FDA-Public Use
  Company Number: AT-INCYTE CORPORATION-2017IN000539

PATIENT

DRUGS (4)
  1. JAKAVI [Suspect]
     Active Substance: RUXOLITINIB
     Dosage: 5 MG, UNK (PAUSED ON WEDNESDAY AND SUNDAYS)
     Route: 048
     Dates: start: 20161020
  2. JAKAVI [Suspect]
     Active Substance: RUXOLITINIB
     Dosage: 20 MG, UNK
     Route: 048
     Dates: start: 20151126, end: 20160608
  3. JAKAVI [Suspect]
     Active Substance: RUXOLITINIB
     Indication: MYELOFIBROSIS
     Dosage: 15 MG, UNK
     Route: 048
     Dates: start: 20131217, end: 20151125
  4. JAKAVI [Suspect]
     Active Substance: RUXOLITINIB
     Dosage: 10 MG, QD
     Route: 048
     Dates: start: 20160609, end: 20161019

REACTIONS (19)
  - Eczema nummular [Recovered/Resolved]
  - Eczema nummular [Recovered/Resolved]
  - Polyneuropathy [Recovered/Resolved]
  - Muscular weakness [Recovered/Resolved with Sequelae]
  - Fatigue [Recovered/Resolved with Sequelae]
  - Rash [Recovered/Resolved]
  - Hyperthyroidism [Recovered/Resolved]
  - Oedema peripheral [Recovered/Resolved]
  - Gait inability [Recovered/Resolved with Sequelae]
  - Hypertension [Not Recovered/Not Resolved]
  - Pulmonary embolism [Recovered/Resolved]
  - Hiatus hernia [Unknown]
  - Thrombosis [Recovered/Resolved]
  - Chronic obstructive pulmonary disease [Unknown]
  - Confusional state [Recovered/Resolved]
  - Goitre [Recovered/Resolved]
  - Penile oedema [Recovered/Resolved]
  - Phlebitis [Recovered/Resolved]
  - Asthenia [Recovered/Resolved with Sequelae]

NARRATIVE: CASE EVENT DATE: 20150904
